FAERS Safety Report 14675235 (Version 3)
Quarter: 2018Q2

REPORT INFORMATION
  Report Type: Spontaneous
  Country: US (occurrence: US)
  Receive Date: 20180323
  Receipt Date: 20180524
  Transmission Date: 20180711
  Serious: Yes (Other)
  Sender: FDA-Public Use
  Company Number: US-LPDUSPRD-20180391

PATIENT
  Age: 26 Year
  Sex: Female
  Weight: 65.5 kg

DRUGS (9)
  1. CALCITRIOL. [Concomitant]
     Active Substance: CALCITRIOL
     Dosage: 2 MG, EVERY HD TREATMENT
     Route: 048
  2. LIDO-PRILO CAINE [Concomitant]
     Dosage: TO ACCESS SITE BEFORE DIALYSIS
     Route: 065
  3. VENOFER [Suspect]
     Active Substance: IRON SUCROSE
     Dosage: 25OCT: 50 OTHER
     Route: 065
  4. MIRCERA [Suspect]
     Active Substance: METHOXY POLYETHYLENE GLYCOL-EPOETIN BETA
     Dosage: 25OCT: 50 OTHER
     Route: 065
  5. CALCIUM ACETATE. [Concomitant]
     Active Substance: CALCIUM ACETATE
     Dosage: 667 MG, 2 CAPSULE THREE TIMES
     Route: 048
  6. OLANZAPINE. [Concomitant]
     Active Substance: OLANZAPINE
     Dosage: 10 MG
     Route: 048
  7. SENSIPAR [Concomitant]
     Active Substance: CINACALCET HYDROCHLORIDE
     Dosage: 30 MG (30 MG, 1 IN 1 D)
     Route: 048
  8. DIVALPROEX [Concomitant]
     Active Substance: DIVALPROEX SODIUM
     Dosage: 500 MG (250 MG, 2 IN 1 D)
     Route: 048
  9. LORAZEPAM. [Concomitant]
     Active Substance: LORAZEPAM
     Dosage: 0.5 MG, 3 IN 1 WEEK
     Route: 048

REACTIONS (1)
  - Aplasia pure red cell [Unknown]
